FAERS Safety Report 5340104-2 (Version None)
Quarter: 2007Q2

REPORT INFORMATION
  Report Type: 
  Country: None (occurrence: None)
  Receive Date: 20070525
  Receipt Date: 20070525
  Transmission Date: 20071010
  Serious: Yes (Hospitalization)
  Sender: FDA-Public Use
  Company Number: None

PATIENT
  Age: 57 Year
  Sex: Male

DRUGS (9)
  1. WARFARIN SODIUM [Suspect]
     Indication: MITRAL VALVE REPLACEMENT
     Dosage: 7 MG DAILY PO
     Route: 048
  2. COLCHICINE [Concomitant]
  3. NIFEREX [Concomitant]
  4. ALLOPURINOL [Concomitant]
  5. CALCITRIOL [Concomitant]
  6. PROTONIX [Concomitant]
  7. POTASSIUM ACETATE [Concomitant]
  8. LABETALOL HCL [Concomitant]
  9. LASIX [Concomitant]

REACTIONS (3)
  - ANAEMIA [None]
  - GASTRITIS [None]
  - UPPER GASTROINTESTINAL HAEMORRHAGE [None]
